FAERS Safety Report 5615700-5 (Version None)
Quarter: 2008Q1

REPORT INFORMATION
  Report Type: 
  Country: None (occurrence: None)
  Receive Date: 20080206
  Receipt Date: 20080124
  Transmission Date: 20080703
  Serious: Yes (Death, Hospitalization)
  Sender: FDA-Public Use
  Company Number: FR-AMGEN-UK260839

PATIENT
  Sex: Male

DRUGS (12)
  1. PANITUMUMAB [Suspect]
     Indication: COLORECTAL CANCER
     Route: 042
     Dates: start: 20071119, end: 20080102
  2. IRINOTECAN [Concomitant]
     Route: 042
  3. FLUOROURACIL [Concomitant]
     Route: 065
  4. LEUCOVORIN CALCIUM [Concomitant]
     Route: 042
  5. DIAMICRON [Concomitant]
     Route: 048
     Dates: start: 20061201
  6. ALLOPURINOL [Concomitant]
     Route: 048
     Dates: start: 19800101
  7. ALPRAZOLAM [Concomitant]
     Route: 048
     Dates: start: 20071001
  8. PARACETAMOL [Concomitant]
     Route: 048
     Dates: start: 20071001
  9. OXYCONTIN [Concomitant]
     Route: 048
     Dates: start: 20071203
  10. FORLAX [Concomitant]
     Route: 048
     Dates: start: 20071203
  11. OXYNORM [Concomitant]
     Route: 048
     Dates: start: 20080102
  12. CICLOPIROX [Concomitant]
     Dates: start: 20071214

REACTIONS (1)
  - HAEMATEMESIS [None]
